FAERS Safety Report 6882491-X (Version None)
Quarter: 2010Q3

REPORT INFORMATION
  Report Type: 
  Country: None (occurrence: None)
  Receive Date: 20100727
  Receipt Date: 20100720
  Transmission Date: 20110219
  Serious: Yes (Death)
  Sender: FDA-Public Use
  Company Number: 2010US002850

PATIENT
  Age: 67 Year
  Sex: Female

DRUGS (33)
  1. PROGRAF [Suspect]
     Indication: LUNG TRANSPLANT
     Dosage: 1 MG, BID, ORAL
     Route: 048
     Dates: start: 20050915, end: 20091002
  2. ADVAIR 9FLUTICASONE PROPIONATE, SALMETEROL XINAFOATE) [Concomitant]
  3. ALBUTEROL SULFATE [Concomitant]
  4. ASPIRIN [Concomitant]
  5. ATIVAN [Concomitant]
  6. AZITHROMYCIN [Concomitant]
  7. BACTRIM DS [Concomitant]
  8. CALCIUM CARBONATE [Concomitant]
  9. CARDIZEM CD [Concomitant]
  10. CELLCEPT [Concomitant]
  11. COMBIVENT (SALBUTAMOL) [Concomitant]
  12. COUMADIN [Concomitant]
  13. DIFLUCAN [Concomitant]
  14. EFFEXOR [Concomitant]
  15. FERROUS SULFATE TAB [Concomitant]
  16. GLIMEPIRIDE [Concomitant]
  17. HYDROCHLOROTHIAZIDE [Concomitant]
  18. KLOR-CON [Concomitant]
  19. LOPRESSOR [Concomitant]
  20. LOSARTAN POTASSIUM [Concomitant]
  21. MAGNESIUM OXIDE (MAGNESIUM OXIDE) [Concomitant]
  22. MORPHINE SULFATE INJ [Concomitant]
  23. MS CONTIN [Concomitant]
  24. MUCOMYST [Concomitant]
  25. MULTIVITAMIN [Concomitant]
  26. MYCELEX [Concomitant]
  27. NEXIUM IV [Concomitant]
  28. PRANDIN [Concomitant]
  29. PREDNISONE [Concomitant]
  30. ROPINIROLE HYDROCHLORIDE [Concomitant]
  31. TOPROL-XL [Concomitant]
  32. TRAZODONE HCL [Concomitant]
  33. XANAX [Concomitant]

REACTIONS (1)
  - OFF LABEL USE [None]
